FAERS Safety Report 5368174-6 (Version None)
Quarter: 2007Q2

REPORT INFORMATION
  Report Type: 
  Country: None (occurrence: None)
  Receive Date: 20070625
  Receipt Date: 20070618
  Transmission Date: 20071010
  Serious: Yes (Hospitalization)
  Sender: FDA-Public Use
  Company Number: PHNU2007DE00960

PATIENT
  Age: 78 Year
  Sex: Male
  Weight: 66 kg

DRUGS (4)
  1. TRILEPTAL [Suspect]
     Indication: EPILEPSY
     Dosage: 1500 MG/D (300-600-600)
     Route: 048
     Dates: start: 20010627
  2. TRILEPTAL [Suspect]
     Dosage: 600 MG, TID
     Route: 048
     Dates: start: 20020301
  3. ESIDRIX [Suspect]
     Dates: end: 20060101
  4. KEPPRA [Concomitant]
     Dosage: 2500 MG/D (1000-500-1000)
     Dates: start: 20050101

REACTIONS (2)
  - CONVULSION [None]
  - HYPONATRAEMIA [None]
